FAERS Safety Report 14983923 (Version 2)
Quarter: 2018Q2

REPORT INFORMATION
  Report Type: Spontaneous
  Country: US (occurrence: US)
  Receive Date: 20180607
  Receipt Date: 20180621
  Transmission Date: 20180711
  Serious: Yes (Death, Other)
  Sender: FDA-Public Use
  Company Number: US-GLAXOSMITHKLINE-US2018100594

PATIENT
  Age: 74 Year
  Sex: Male
  Weight: 145.13 kg

DRUGS (14)
  1. RYTHMOL SR [Suspect]
     Active Substance: PROPAFENONE HYDROCHLORIDE
     Indication: ATRIAL FIBRILLATION
     Dosage: 425 MG, BID
     Route: 048
  2. TYLENOL [Concomitant]
     Active Substance: ACETAMINOPHEN
  3. ALLOPURINOL. [Concomitant]
     Active Substance: ALLOPURINOL
  4. RAMIPRIL. [Concomitant]
     Active Substance: RAMIPRIL
  5. GABAPENTIN. [Concomitant]
     Active Substance: GABAPENTIN
  6. POTASSIUM CITRATE. [Concomitant]
     Active Substance: POTASSIUM CITRATE
  7. METFORMIN [Concomitant]
     Active Substance: METFORMIN HYDROCHLORIDE
  8. LASIX [Concomitant]
     Active Substance: FUROSEMIDE
  9. ASPIRIN. [Concomitant]
     Active Substance: ASPIRIN
  10. TAMSULOSIN [Concomitant]
     Active Substance: TAMSULOSIN
  11. ATORVASTATIN [Concomitant]
     Active Substance: ATORVASTATIN
  12. PROPAFENONE. [Suspect]
     Active Substance: PROPAFENONE
     Indication: ATRIAL FIBRILLATION
     Dosage: UNK UNK, TID
     Route: 048
  13. ACIPHEX [Concomitant]
     Active Substance: RABEPRAZOLE SODIUM
  14. TRAZODONE [Concomitant]
     Active Substance: TRAZODONE HYDROCHLORIDE

REACTIONS (4)
  - Drug ineffective [Unknown]
  - Myocardial infarction [Fatal]
  - Road traffic accident [Fatal]
  - Loss of consciousness [Unknown]

NARRATIVE: CASE EVENT DATE: 20180524
